FAERS Safety Report 23954120 (Version 2)
Quarter: 2024Q2

REPORT INFORMATION
  Report Type: Spontaneous
  Country: EG (occurrence: EG)
  Receive Date: 20240609
  Receipt Date: 20240619
  Transmission Date: 20240716
  Serious: Yes (Hospitalization, Other)
  Sender: FDA-Public Use
  Company Number: EG-NOVOPROD-1230413

PATIENT
  Sex: Male
  Weight: 105 kg

DRUGS (9)
  1. ACTRAPID [Suspect]
     Active Substance: INSULIN HUMAN
     Dosage: 54 IU, QD (20U BEFORE BREAKFAST - 24U BEFORE LUNCH AND 10U BEFORE DINNER)
     Route: 058
  2. ACTRAPID [Suspect]
     Active Substance: INSULIN HUMAN
     Dosage: 50 IU, QD(20U BEFORE BREAKFAST - 24U BEFORE LUNCH AND 10U BEFORE DINNER)(7-8 YEARS AGO )
     Route: 058
  3. ACTRAPID [Suspect]
     Active Substance: INSULIN HUMAN
     Dosage: UNK
     Route: 058
     Dates: start: 2018
  4. ACTRAPID [Suspect]
     Active Substance: INSULIN HUMAN
     Indication: Type 2 diabetes mellitus
     Dosage: UNK
     Route: 058
  5. ACTRAPID [Suspect]
     Active Substance: INSULIN HUMAN
     Dosage: 40 IU, QD(15U BEFORE BREAKFAST - 15U BEFORE LUNCH AND 10U BEFORE DINNER. )
     Route: 058
     Dates: start: 2019
  6. ACTRAPID [Suspect]
     Active Substance: INSULIN HUMAN
     Dosage: UNK
     Route: 058
     Dates: start: 2016
  7. LANTUS [Concomitant]
     Active Substance: INSULIN GLARGINE
     Indication: Type 2 diabetes mellitus
     Dosage: 30 IU, QD(2-3 YEARS )
     Route: 058
  8. DAPAGLIFLOZIN [Concomitant]
     Active Substance: DAPAGLIFLOZIN
     Indication: Type 2 diabetes mellitus
     Dosage: 1 TAB DAILY(FROM 1 YEAR AGO )
     Route: 048
  9. VILDAGLIPTIN [Concomitant]
     Active Substance: VILDAGLIPTIN
     Indication: Type 2 diabetes mellitus
     Dosage: 1 TAB DAILY(FROM 1 YEAR AND 6 MONTHS AGO )
     Route: 048

REACTIONS (12)
  - Coronary arterial stent insertion [Recovered/Resolved]
  - Coronary arterial stent insertion [Recovered/Resolved]
  - Joint arthroplasty [Recovered/Resolved]
  - Myocardial infarction [Recovered/Resolved]
  - Myocardial infarction [Not Recovered/Not Resolved]
  - Hypoglycaemic coma [Recovered/Resolved]
  - Hyperuricaemia [Not Recovered/Not Resolved]
  - Renal function test abnormal [Unknown]
  - Oedema peripheral [Not Recovered/Not Resolved]
  - Weight increased [Not Recovered/Not Resolved]
  - Hyperglycaemia [Not Recovered/Not Resolved]
  - Drug ineffective [Unknown]

NARRATIVE: CASE EVENT DATE: 20160101
